FAERS Safety Report 4844681-7 (Version None)
Quarter: 2005Q4

REPORT INFORMATION
  Report Type: 
  Country: None (occurrence: None)
  Receive Date: 20051129
  Receipt Date: 20051117
  Transmission Date: 20060501
  Serious: Yes (Other)
  Sender: FDA-Public Use
  Company Number: 219620

PATIENT
  Age: 46 Year
  Sex: Male
  Weight: 110.2 kg

DRUGS (1)
  1. RAPTIVA [Suspect]
     Indication: PSORIASIS
     Dosage: 1.1 ML, 1/WEEK, SUBCUTANEOUS
     Route: 058
     Dates: start: 20040501

REACTIONS (2)
  - BONE NEOPLASM [None]
  - NEOPLASM RECURRENCE [None]
